FAERS Safety Report 6148338-4 (Version None)
Quarter: 2009Q2

REPORT INFORMATION
  Report Type: 
  Country: None (occurrence: None)
  Receive Date: 20090408
  Receipt Date: 20090401
  Transmission Date: 20091009
  Serious: Yes (Life-Threatening, Hospitalization, Other)
  Sender: FDA-Public Use
  Company Number: FR-ELI_LILLY_AND_COMPANY-FR200904000119

PATIENT
  Sex: Female

DRUGS (3)
  1. GEMZAR [Suspect]
     Indication: LUNG NEOPLASM MALIGNANT
     Dosage: 1300 MG, WEEKLY (1/W), DURING SIX WEEKS, AND ONE WEEK REST
     Route: 042
     Dates: start: 20081114, end: 20081218
  2. TAXOTERE [Concomitant]
     Indication: LUNG NEOPLASM MALIGNANT
     Dosage: 43 MG, WEEKLY (1/W), DURING SIX WEEKS AND ONE WEEK REST
     Route: 042
     Dates: start: 20081114, end: 20081218
  3. TARCEVA [Concomitant]
     Indication: MALIGNANT NEOPLASM PROGRESSION
     Dosage: UNK, UNKNOWN
     Route: 048
     Dates: start: 20081110

REACTIONS (5)
  - ABDOMINAL DISTENSION [None]
  - CARDIAC FAILURE [None]
  - DYSPNOEA [None]
  - LUNG DISORDER [None]
  - PULMONARY FIBROSIS [None]
